FAERS Safety Report 8309120-2 (Version None)
Quarter: 2012Q2

REPORT INFORMATION
  Report Type: 
  Country: None (occurrence: None)
  Receive Date: 20120424
  Receipt Date: 20120419
  Transmission Date: 20120825
  Serious: Yes (Other)
  Sender: FDA-Public Use
  Company Number: PHHY2012CH033790

PATIENT
  Age: 65 Year
  Sex: Male

DRUGS (12)
  1. NEXIUM [Concomitant]
     Dosage: UNK
     Route: 048
     Dates: start: 20111101, end: 20111101
  2. FLOXAPEN [Concomitant]
     Indication: INFECTION PARASITIC
  3. MIACALCIN [Concomitant]
     Dates: start: 20111101, end: 20111101
  4. ALDACTONE [Suspect]
     Route: 048
     Dates: start: 20111101
  5. SCOPOLAMINE [Suspect]
     Dosage: UNK
     Route: 048
     Dates: start: 20111101
  6. RIMACTANE [Suspect]
     Indication: SPONDYLOARTHROPATHY
     Route: 048
     Dates: start: 20111101
  7. CIPROFLOXACIN [Suspect]
     Indication: SPONDYLOARTHROPATHY
     Route: 048
     Dates: start: 20111101
  8. CLINDAMYCIN HCL [Concomitant]
     Indication: SPONDYLOARTHROPATHY
     Dates: start: 20111101, end: 20111101
  9. ENALAPRIL MALEATE [Concomitant]
     Route: 048
     Dates: start: 20111101, end: 20111101
  10. FLOXAPEN [Concomitant]
     Indication: SPONDYLOARTHROPATHY
     Dosage: UNK
     Dates: start: 20111101, end: 20111101
  11. ALBUMIN (HUMAN) [Concomitant]
     Route: 041
     Dates: start: 20111101, end: 20111101
  12. ECONAZOLE NITRATE [Concomitant]

REACTIONS (3)
  - ECZEMA [None]
  - RASH [None]
  - PIGMENTATION DISORDER [None]
